FAERS Safety Report 10813230 (Version 1)
Quarter: 2015Q1

REPORT INFORMATION
  Report Type: Report from Study
  Country: US (occurrence: US)
  Receive Date: 20150218
  Receipt Date: 20150218
  Transmission Date: 20150721
  Serious: No
  Sender: FDA-Public Use
  Company Number: US-ABBVIE-14K-163-1271583-00

PATIENT
  Age: 45 Year
  Sex: Female
  Weight: 95.34 kg

DRUGS (6)
  1. IMIPRAMINE [Concomitant]
     Active Substance: IMIPRAMINE
     Indication: AUTOMATIC BLADDER
  2. FIBER [Concomitant]
     Active Substance: PSYLLIUM HUSK
     Indication: PELVIC FLOOR MUSCLE WEAKNESS
  3. MIRALAX [Concomitant]
     Active Substance: POLYETHYLENE GLYCOL 3350
     Indication: PELVIC FLOOR MUSCLE WEAKNESS
  4. BENTYL [Concomitant]
     Active Substance: DICYCLOMINE HYDROCHLORIDE
     Indication: ABDOMINAL DISTENSION
  5. HUMIRA [Suspect]
     Active Substance: ADALIMUMAB
     Indication: PSORIASIS
     Dates: start: 20140718
  6. HUMIRA [Suspect]
     Active Substance: ADALIMUMAB
     Indication: PSORIATIC ARTHROPATHY

REACTIONS (2)
  - Injection site erythema [Recovered/Resolved]
  - Injection site erythema [Recovered/Resolved]

NARRATIVE: CASE EVENT DATE: 20140718
